FAERS Safety Report 11730302 (Version 1)
Quarter: 2015Q4

REPORT INFORMATION
  Report Type: Spontaneous
  Country: US (occurrence: US)
  Receive Date: 20151110
  Receipt Date: 20151110
  Transmission Date: 20160304
  Serious: No
  Sender: FDA-Public Use
  Company Number: US-ELI_LILLY_AND_COMPANY-US201111003625

PATIENT
  Age: 65 Year
  Sex: Female

DRUGS (2)
  1. FORTEO [Suspect]
     Active Substance: TERIPARATIDE
     Indication: OSTEOPOROSIS
     Dosage: 20 UG, QD
     Dates: start: 20111028, end: 20111105
  2. FORTEO [Suspect]
     Active Substance: TERIPARATIDE
     Dosage: 20 UG, QOD
     Dates: end: 201201

REACTIONS (10)
  - Bronchitis [Unknown]
  - Adverse event [Not Recovered/Not Resolved]
  - Nausea [Unknown]
  - Sleep disorder due to a general medical condition [Unknown]
  - Abdominal pain upper [Unknown]
  - Asthenia [Unknown]
  - Medication error [Unknown]
  - Malaise [Unknown]
  - Intentional product misuse [Unknown]
  - Dizziness [Not Recovered/Not Resolved]

NARRATIVE: CASE EVENT DATE: 20111031
